FAERS Safety Report 5035246-5 (Version None)
Quarter: 2006Q2

REPORT INFORMATION
  Report Type: 
  Country: None (occurrence: None)
  Receive Date: 20060627
  Receipt Date: 20060615
  Transmission Date: 20061013
  Serious: Yes (Life-Threatening, Hospitalization)
  Sender: FDA-Public Use
  Company Number: ES-ROCHE-451988

PATIENT
  Age: 52 Year
  Sex: Male
  Weight: 80 kg

DRUGS (2)
  1. ROACCUTANE [Suspect]
     Indication: ACNE
     Route: 048
     Dates: start: 20060403, end: 20060420
  2. LORAZEPAM [Concomitant]
     Route: 048

REACTIONS (2)
  - CHOLURIA [None]
  - THROMBOTIC THROMBOCYTOPENIC PURPURA [None]
